FAERS Safety Report 11029596 (Version 1)
Quarter: 2015Q2

REPORT INFORMATION
  Report Type: Spontaneous
  Country: US (occurrence: None)
  Receive Date: 20150413
  Receipt Date: 20150413
  Transmission Date: 20150821
  Serious: Yes (Other)
  Sender: FDA-Public Use
  Company Number: 2015GR_BP000627

PATIENT
  Age: 79 Year
  Sex: Male

DRUGS (6)
  1. FINASTERIDE. [Suspect]
     Active Substance: FINASTERIDE
     Indication: PRODUCT USED FOR UNKNOWN INDICATION
  2. LISINOPRIL. [Concomitant]
     Active Substance: LISINOPRIL
  3. PROPRANOLOL [Concomitant]
     Active Substance: PROPRANOLOL\PROPRANOLOL HYDROCHLORIDE
  4. DOCUSATE [Concomitant]
     Active Substance: DOCUSATE
  5. DIGOXIN. [Concomitant]
     Active Substance: DIGOXIN
  6. FUROSEMIDE. [Concomitant]
     Active Substance: FUROSEMIDE

REACTIONS (4)
  - Hepatocellular injury [None]
  - Blood alcohol increased [None]
  - Seizure [None]
  - Hypoglycaemic seizure [None]
